FAERS Safety Report 17546469 (Version 4)
Quarter: 2020Q2

REPORT INFORMATION
  Report Type: Spontaneous
  Country: US (occurrence: US)
  Receive Date: 20200316
  Receipt Date: 20200610
  Transmission Date: 20200713
  Serious: Yes (Other)
  Sender: FDA-Public Use
  Company Number: US-SHIRE-US202009444

PATIENT
  Age: 13 Year
  Sex: Male

DRUGS (8)
  1. ADVATE [Suspect]
     Active Substance: ANTIHEMOPHILIC FACTOR, HUMAN RECOMBINANT
     Dosage: 2700 INTERNATIONAL UNIT
     Route: 042
  2. ADVATE [Suspect]
     Active Substance: ANTIHEMOPHILIC FACTOR, HUMAN RECOMBINANT
     Dosage: 1700 INTERNATIONAL UNIT
     Route: 042
  3. ADVATE [Suspect]
     Active Substance: ANTIHEMOPHILIC FACTOR, HUMAN RECOMBINANT
     Dosage: 2350 UNIT UNKNOWN, FREQUENCY UNKNOWN
     Route: 042
  4. ADVATE [Suspect]
     Active Substance: ANTIHEMOPHILIC FACTOR, HUMAN RECOMBINANT
     Indication: PRODUCT USED FOR UNKNOWN INDICATION
     Dosage: 1600 INTERNATIONAL UNIT
     Route: 042
  5. ADVATE [Suspect]
     Active Substance: ANTIHEMOPHILIC FACTOR, HUMAN RECOMBINANT
     Dosage: 2200 INTERNATIONAL UNIT
     Route: 042
  6. ADVATE [Suspect]
     Active Substance: ANTIHEMOPHILIC FACTOR, HUMAN RECOMBINANT
     Dosage: 2300 INTERNATIONAL UNIT
     Route: 042
  7. ADVATE [Suspect]
     Active Substance: ANTIHEMOPHILIC FACTOR, HUMAN RECOMBINANT
     Dosage: 2800 UNIT UNKNOWN, FREQUENCY UNKNOWN
     Route: 042
  8. ADVATE [Suspect]
     Active Substance: ANTIHEMOPHILIC FACTOR, HUMAN RECOMBINANT
     Dosage: 3350 UNIT UNKNOWN, FREQUENCY UNKNOWN
     Route: 042

REACTIONS (7)
  - Haemorrhage [Recovered/Resolved]
  - Eye injury [Recovered/Resolved]
  - Eye haemorrhage [Recovered/Resolved]
  - Haemarthrosis [Recovered/Resolved]
  - Headache [Recovered/Resolved]
  - Influenza [Recovered/Resolved]
  - Limb injury [Recovered/Resolved]

NARRATIVE: CASE EVENT DATE: 202001
